FAERS Safety Report 15993779 (Version 1)
Quarter: 2019Q1

REPORT INFORMATION
  Report Type: Spontaneous
  Country: US (occurrence: US)
  Receive Date: 20190222
  Receipt Date: 20190222
  Transmission Date: 20190418
  Serious: No
  Sender: FDA-Public Use
  Company Number: US-SA-2019SA040454

PATIENT
  Sex: Female

DRUGS (1)
  1. ADMELOG [Suspect]
     Active Substance: INSULIN LISPRO
     Indication: INSULIN RESISTANT DIABETES
     Dosage: 10 U, TID
     Route: 065
     Dates: start: 20190207

REACTIONS (7)
  - Balance disorder [Unknown]
  - Paraesthesia [Unknown]
  - Gait disturbance [Unknown]
  - Intentional product use issue [Unknown]
  - Blood glucose increased [Unknown]
  - Hypoaesthesia [Unknown]
  - Malaise [Unknown]
